FAERS Safety Report 6170095-6 (Version None)
Quarter: 2009Q2

REPORT INFORMATION
  Report Type: 
  Country: None (occurrence: None)
  Receive Date: 20090428
  Receipt Date: 20090421
  Transmission Date: 20091009
  Serious: Yes (Hospitalization)
  Sender: FDA-Public Use
  Company Number: B0564260A

PATIENT
  Sex: Female
  Weight: 46 kg

DRUGS (14)
  1. VALTREX [Suspect]
     Indication: HERPES ZOSTER
     Dosage: 1000MG PER DAY
     Route: 048
     Dates: start: 20090304, end: 20090306
  2. ARTIST [Concomitant]
     Indication: ANGINA PECTORIS
     Dosage: 5MG PER DAY
     Route: 048
  3. CARDENALIN [Concomitant]
     Indication: HYPERTENSION
     Dosage: 2MG PER DAY
     Route: 048
  4. SIGMART [Concomitant]
     Indication: ANGINA PECTORIS
     Dosage: 15MG PER DAY
     Route: 048
  5. MUCOSTA [Concomitant]
     Indication: GASTRIC ULCER
     Dosage: 300MG PER DAY
     Route: 048
  6. ITOROL [Concomitant]
     Indication: ANGINA PECTORIS
     Dosage: 60MG PER DAY
     Route: 048
  7. ANPLAG [Concomitant]
     Indication: ANGINA PECTORIS
     Dosage: 300MG PER DAY
     Route: 048
  8. THYRADIN S [Concomitant]
     Indication: HYPOTHYROIDISM
     Dosage: 125MG PER DAY
     Route: 048
  9. ZYLORIC [Concomitant]
     Dosage: 50MG PER DAY
     Route: 048
  10. FUROSEMIDE [Concomitant]
     Dosage: 120MG PER DAY
     Route: 048
  11. ALFAROL [Concomitant]
     Indication: HYPERPARATHYROIDISM SECONDARY
     Dosage: .25MCG PER DAY
     Route: 048
  12. GASMOTIN [Concomitant]
     Indication: DIABETIC GASTROENTEROPATHY
     Dosage: 5G PER DAY
     Route: 048
  13. BIOFERMIN [Concomitant]
     Indication: DIABETIC GASTROENTEROPATHY
     Dosage: 3G PER DAY
     Route: 048
  14. PENFILL 30R [Concomitant]
     Indication: DIABETIC GASTROENTEROPATHY
     Dosage: 16IU PER DAY
     Route: 058

REACTIONS (3)
  - ABASIA [None]
  - ALTERED STATE OF CONSCIOUSNESS [None]
  - SOMNOLENCE [None]
